FAERS Safety Report 5204003-9 (Version None)
Quarter: 2007Q1

REPORT INFORMATION
  Report Type: 
  Country: None (occurrence: None)
  Receive Date: 20070105
  Receipt Date: 20061221
  Transmission Date: 20070707
  Serious: Yes (Other)
  Sender: FDA-Public Use
  Company Number: 2006SP006780

PATIENT

DRUGS (5)
  1. PEGETRON (PEGINTERFERON ALFA-2B W/RIBAVIRIN) (PEGYLATED INTERFERON ALF [Suspect]
     Indication: HEPATITIS C
     Dosage: SEE IMAGE
     Route: 058
     Dates: start: 20061006
  2. DILANTIN [Concomitant]
  3. PAXIL [Concomitant]
  4. VALIUM [Concomitant]
  5. TYLENOL [Concomitant]

REACTIONS (1)
  - HYPOKALAEMIA [None]
